FAERS Safety Report 14491407 (Version 6)
Quarter: 2018Q3

REPORT INFORMATION
  Report Type: Report from Study
  Country: US (occurrence: US)
  Receive Date: 20180206
  Receipt Date: 20180723
  Transmission Date: 20181010
  Serious: Yes (Hospitalization, Other)
  Sender: FDA-Public Use
  Company Number: PHHO2017US014086

PATIENT
  Age: 17 Year
  Sex: Male
  Weight: 78.7 kg

DRUGS (98)
  1. PULMOZYME [Concomitant]
     Active Substance: DORNASE ALFA
     Indication: CYSTIC FIBROSIS LUNG
     Dosage: 2.5 MG, QD
     Route: 055
     Dates: start: 20170302, end: 20180108
  2. ORKAMBI [Concomitant]
     Active Substance: IVACAFTOR\LUMACAFTOR
     Dosage: 2 DF, BID
     Route: 048
     Dates: start: 20170916, end: 20170917
  3. PANCRELIPASE. [Concomitant]
     Active Substance: PANCRELIPASE
     Dosage: 9 DF, BID
     Route: 048
     Dates: start: 20170918, end: 20170918
  4. AQUADEKS [Concomitant]
     Active Substance: MINERALS\VITAMINS
     Dosage: 1 DF, BID
     Route: 048
     Dates: start: 20170919
  5. LEVOFLOXACIN. [Concomitant]
     Active Substance: LEVOFLOXACIN
     Indication: PSEUDOMONAS INFECTION
     Dosage: 750 MG, QD
     Route: 048
     Dates: start: 20170616, end: 20170630
  6. SODIUM CHLORIDE. [Concomitant]
     Active Substance: SODIUM CHLORIDE
     Dosage: 4 ML, QD
     Route: 055
     Dates: start: 20170918, end: 20170918
  7. ALBUTEROL. [Concomitant]
     Active Substance: ALBUTEROL
     Indication: PULMONARY FUNCTION TEST DECREASED
     Dosage: 2 DF (PUFFS), TID
     Route: 055
     Dates: start: 20170911, end: 20170911
  8. HEPARIN [Concomitant]
     Active Substance: HEPARIN SODIUM
     Dosage: 5 U, QD
     Route: 042
     Dates: start: 20180115, end: 20180117
  9. LINEZOLID. [Concomitant]
     Active Substance: LINEZOLID
     Indication: BACTERIAL INFECTION
     Dosage: 600 MG, BID
     Route: 042
     Dates: start: 20170911, end: 20170917
  10. ALBUTEROL HFA [Concomitant]
     Active Substance: ALBUTEROL SULFATE
     Dosage: UNK
     Route: 065
     Dates: start: 20170912, end: 20180108
  11. NASONEX [Concomitant]
     Active Substance: MOMETASONE FUROATE
     Dosage: 2 DF (SPRAY), QD
     Route: 045
     Dates: start: 20170912, end: 20180114
  12. ORKAMBI [Concomitant]
     Active Substance: IVACAFTOR\LUMACAFTOR
     Dosage: 2 DF, BID
     Route: 048
     Dates: start: 20170912, end: 20170915
  13. ORKAMBI [Concomitant]
     Active Substance: IVACAFTOR\LUMACAFTOR
     Dosage: 2 DF, BID
     Route: 048
     Dates: start: 20180118, end: 20180118
  14. PANCRELIPASE. [Concomitant]
     Active Substance: PANCRELIPASE
     Indication: PANCREATIC FAILURE
     Dosage: 31 DF, QD
     Route: 048
     Dates: start: 20161012, end: 20170909
  15. PANCRELIPASE. [Concomitant]
     Active Substance: PANCRELIPASE
     Dosage: 9 DF, TID
     Route: 048
     Dates: start: 20170912, end: 20170912
  16. PANCRELIPASE. [Concomitant]
     Active Substance: PANCRELIPASE
     Dosage: 7 DF, QD
     Route: 048
     Dates: start: 20180109, end: 20180109
  17. AQUADEKS [Concomitant]
     Active Substance: MINERALS\VITAMINS
     Dosage: 1 DF, BID
     Route: 048
     Dates: start: 20170918, end: 20170918
  18. LACTATED RINGERS SOLUTION [Concomitant]
     Active Substance: CALCIUM CHLORIDE\POTASSIUM CHLORIDE\SODIUM CHLORIDE\SODIUM LACTATE
     Indication: FLUID REPLACEMENT
     Dosage: 200 ML, QD
     Route: 048
     Dates: start: 20170911, end: 20170911
  19. CEFTAZIDIME. [Concomitant]
     Active Substance: CEFTAZIDIME
     Indication: BACTERIAL INFECTION
     Dosage: 2000 MG, QD
     Route: 042
     Dates: start: 20170910, end: 20170910
  20. CEFTAZIDIME. [Concomitant]
     Active Substance: CEFTAZIDIME
     Dosage: 2000 MG, BID
     Route: 042
     Dates: start: 20180118, end: 20180118
  21. HEPARIN [Concomitant]
     Active Substance: HEPARIN SODIUM
     Dosage: 10 U, BID
     Route: 042
     Dates: start: 20170914, end: 20170917
  22. HEPARIN [Concomitant]
     Active Substance: HEPARIN SODIUM
     Dosage: 100 U, QD
     Route: 042
     Dates: start: 20180110, end: 20180111
  23. HEPARIN [Concomitant]
     Active Substance: HEPARIN SODIUM
     Dosage: 5 U, BID
     Route: 042
     Dates: start: 20180112, end: 20180112
  24. INFLUENZA VACCINE [Concomitant]
     Active Substance: INFLUENZA VIRUS VACCINE
     Indication: ANTIVIRAL PROPHYLAXIS
     Dosage: 0.05 MG, QD
     Route: 030
     Dates: start: 20170113, end: 20170113
  25. TOBI [Suspect]
     Active Substance: TOBRAMYCIN
     Dosage: 300 MG, BID
     Route: 055
     Dates: start: 20170919
  26. ALBUTEROL HFA [Concomitant]
     Active Substance: ALBUTEROL SULFATE
     Dosage: UNK
     Route: 065
     Dates: start: 20180110, end: 20180113
  27. AZITHROMYCIN ANHYDROUS. [Concomitant]
     Active Substance: AZITHROMYCIN ANHYDROUS
     Indication: PSEUDOMONAS INFECTION
     Dosage: 250 MG, TIW
     Route: 048
     Dates: start: 20160511, end: 20170910
  28. ORKAMBI [Concomitant]
     Active Substance: IVACAFTOR\LUMACAFTOR
     Indication: GENE MUTATION
     Dosage: 2 DF, BID
     Route: 048
     Dates: start: 20170509, end: 20170910
  29. ORKAMBI [Concomitant]
     Active Substance: IVACAFTOR\LUMACAFTOR
     Dosage: 2 DF, BID
     Route: 048
     Dates: start: 20180109, end: 20180109
  30. PANCRELIPASE. [Concomitant]
     Active Substance: PANCRELIPASE
     Dosage: 22 DF, QD
     Route: 048
     Dates: start: 20170913, end: 20170913
  31. SODIUM CHLORIDE. [Concomitant]
     Active Substance: SODIUM CHLORIDE
     Dosage: 4 ML, QID
     Route: 055
     Dates: start: 20180115, end: 20180116
  32. BECLOMETHASONE [Concomitant]
     Active Substance: BECLOMETHASONE
     Dosage: 2 DF(PUFFS), BID
     Route: 055
     Dates: start: 20170912, end: 20170917
  33. HEPARIN [Concomitant]
     Active Substance: HEPARIN SODIUM
     Dosage: 50 U, QD
     Route: 042
     Dates: start: 20180112, end: 20180112
  34. NASONEX [Concomitant]
     Active Substance: MOMETASONE FUROATE
     Dosage: 2 DF (SPRAY), QD
     Route: 045
     Dates: start: 20180115
  35. SULFAMETHOXAZOLE AND TRIMETHOPRIM [Concomitant]
     Active Substance: SULFAMETHOXAZOLE\TRIMETHOPRIM
     Indication: STAPHYLOCOCCAL INFECTION
     Dosage: 1 DF, BID
     Route: 048
     Dates: start: 20170616, end: 20170707
  36. SODIUM CHLORIDE. [Concomitant]
     Active Substance: SODIUM CHLORIDE
     Dosage: 4 ML, QID
     Route: 055
     Dates: start: 20180111, end: 20180112
  37. ALBUTEROL. [Concomitant]
     Active Substance: ALBUTEROL
     Indication: CYSTIC FIBROSIS LUNG
     Dosage: 2 DF (PUFFS), QD
     Route: 055
     Dates: start: 20170910, end: 20170910
  38. CEFTAZIDIME. [Concomitant]
     Active Substance: CEFTAZIDIME
     Dosage: 2000 MG, BID
     Route: 042
     Dates: start: 20170918, end: 20170918
  39. HEPARIN [Concomitant]
     Active Substance: HEPARIN SODIUM
     Dosage: 5 U, QD
     Route: 042
     Dates: start: 20180109, end: 20180109
  40. ALBUTEROL HFA [Concomitant]
     Active Substance: ALBUTEROL SULFATE
     Indication: CYSTIC FIBROSIS LUNG
     Dosage: 2 DF (2 PUFFS), QID
     Route: 055
     Dates: start: 20170120, end: 20170909
  41. ALBUTEROL HFA [Concomitant]
     Active Substance: ALBUTEROL SULFATE
     Dosage: UNK
     Route: 065
     Dates: start: 20180114, end: 20180114
  42. ORKAMBI [Concomitant]
     Active Substance: IVACAFTOR\LUMACAFTOR
     Dosage: 2 DF, BID
     Route: 048
     Dates: start: 20180119
  43. PANCRELIPASE. [Concomitant]
     Active Substance: PANCRELIPASE
     Dosage: 40 MG, QD
     Route: 048
     Dates: start: 20180109
  44. BECLOMETHASONE [Concomitant]
     Active Substance: BECLOMETHASONE
     Dosage: 2 DF (PUFFS), TID
     Route: 055
     Dates: start: 20180109, end: 20180109
  45. CEFTAZIDIME. [Concomitant]
     Active Substance: CEFTAZIDIME
     Dosage: 2000 MG, QD
     Route: 042
     Dates: start: 20180108, end: 20180108
  46. FENTANYL. [Concomitant]
     Active Substance: FENTANYL
     Dosage: 50 UG, QD
     Route: 042
     Dates: start: 20170911, end: 20170911
  47. LINEZOLID. [Concomitant]
     Active Substance: LINEZOLID
     Dosage: 600 MG, QD
     Route: 042
     Dates: start: 20170918, end: 20170918
  48. MIDAZOLAM [Concomitant]
     Active Substance: MIDAZOLAM HYDROCHLORIDE
     Dosage: 1.5 MG, QD
     Route: 042
     Dates: start: 20170911, end: 20170911
  49. PROPOFOL. [Concomitant]
     Active Substance: PROPOFOL
     Indication: SEDATION
     Dosage: 92.28 MG, VARIABLE
     Route: 042
     Dates: start: 20170911, end: 20170911
  50. TOBI [Suspect]
     Active Substance: TOBRAMYCIN
     Indication: CYSTIC FIBROSIS
     Dosage: 300 MG, BID
     Route: 055
     Dates: start: 20110414
  51. TOBI [Suspect]
     Active Substance: TOBRAMYCIN
     Indication: PSEUDOMONAS INFECTION
     Dosage: 300 MG, BID
     Route: 055
     Dates: start: 20170901, end: 20170929
  52. ORKAMBI [Concomitant]
     Active Substance: IVACAFTOR\LUMACAFTOR
     Dosage: 2 DF, BID
     Route: 048
     Dates: start: 20170918, end: 20170918
  53. PANTOPRAZOLE [Concomitant]
     Active Substance: PANTOPRAZOLE
     Indication: PANCREATIC FAILURE
     Dosage: 20 MG, QD
     Route: 048
     Dates: start: 20160511, end: 20180108
  54. CHOLECALCIFEROL [Concomitant]
     Active Substance: CHOLECALCIFEROL
     Indication: VITAMIN D DEFICIENCY
     Dosage: 5000 U, QD
     Route: 048
     Dates: start: 20170913, end: 20170913
  55. SODIUM CHLORIDE. [Concomitant]
     Active Substance: SODIUM CHLORIDE
     Dosage: 4 ML, TID
     Route: 055
     Dates: start: 20170912, end: 20170917
  56. SODIUM CHLORIDE. [Concomitant]
     Active Substance: SODIUM CHLORIDE
     Dosage: 4 ML, TID
     Route: 055
     Dates: start: 20180117, end: 20180117
  57. ALTEPLASE. [Concomitant]
     Active Substance: ALTEPLASE
     Indication: THROMBOSIS PROPHYLAXIS
     Dosage: 2 MG, QD
     Route: 042
     Dates: start: 20180112, end: 20180112
  58. BECLOMETHASONE [Concomitant]
     Active Substance: BECLOMETHASONE
     Dosage: 2 DF (PUFFS), BID
     Route: 055
     Dates: start: 20180110, end: 20180117
  59. BECLOMETHASONE [Concomitant]
     Active Substance: BECLOMETHASONE
     Dosage: 2 DF (PUFFS), QD
     Route: 055
     Dates: start: 20180118, end: 20180118
  60. CEFTAZIDIME. [Concomitant]
     Active Substance: CEFTAZIDIME
     Dosage: 2000 MG, TID
     Route: 042
     Dates: start: 20180109, end: 20180109
  61. CEFTAZIDIME. [Concomitant]
     Active Substance: CEFTAZIDIME
     Dosage: 2000 MG, QID
     Route: 042
     Dates: start: 20180110, end: 20180117
  62. HEPARIN [Concomitant]
     Active Substance: HEPARIN SODIUM
     Dosage: 5 U, QD
     Route: 042
     Dates: start: 20180111, end: 20180112
  63. LINEZOLID. [Concomitant]
     Active Substance: LINEZOLID
     Dosage: 600 MG, QD
     Route: 042
     Dates: start: 20180118, end: 20180118
  64. MIDAZOLAM [Concomitant]
     Active Substance: MIDAZOLAM HYDROCHLORIDE
     Indication: TENSION
     Dosage: 0.5 MG, QD
     Route: 042
     Dates: start: 20170911, end: 20170911
  65. ONDANSETRON [Concomitant]
     Active Substance: ONDANSETRON
     Indication: NAUSEA
     Dosage: 4 MG, QD
     Route: 042
     Dates: start: 20170911, end: 20170911
  66. ALBUTEROL HFA [Concomitant]
     Active Substance: ALBUTEROL SULFATE
     Indication: PULMONARY FUNCTION TEST DECREASED
     Dosage: UNK
     Route: 065
     Dates: start: 20170910, end: 20170910
  67. HYPERSOL [Concomitant]
     Indication: CYSTIC FIBROSIS LUNG
     Dosage: 1 DF, BID
     Route: 055
     Dates: start: 20160826
  68. ORKAMBI [Concomitant]
     Active Substance: IVACAFTOR\LUMACAFTOR
     Dosage: 2 DF, BID
     Route: 048
     Dates: start: 20170911, end: 20170911
  69. ORKAMBI [Concomitant]
     Active Substance: IVACAFTOR\LUMACAFTOR
     Dosage: 2 DF, BID
     Route: 048
     Dates: start: 20170919, end: 20180107
  70. PANCRELIPASE. [Concomitant]
     Active Substance: PANCRELIPASE
     Dosage: 34 DF, QD
     Route: 048
     Dates: start: 20170919
  71. PANCRELIPASE. [Concomitant]
     Active Substance: PANCRELIPASE
     Dosage: 7 DF, BID
     Route: 048
     Dates: start: 20180118, end: 20180118
  72. AQUADEKS [Concomitant]
     Active Substance: MINERALS\VITAMINS
     Indication: NUTRITIONAL SUPPLEMENTATION
     Dosage: 1 DF, BID
     Route: 048
     Dates: start: 20161120, end: 20170911
  73. SODIUM CHLORIDE. [Concomitant]
     Active Substance: SODIUM CHLORIDE
     Dosage: 4 ML, TID
     Route: 055
     Dates: start: 20180118, end: 20180118
  74. ALBUTEROL. [Concomitant]
     Active Substance: ALBUTEROL
     Dosage: 2 DF (PUFFS), QID
     Route: 055
     Dates: start: 20170912, end: 20180108
  75. BECLOMETHASONE [Concomitant]
     Active Substance: BECLOMETHASONE
     Dosage: 2 DF (PUFFS), QD
     Route: 055
     Dates: start: 20170918, end: 20170918
  76. CEFTAZIDIME. [Concomitant]
     Active Substance: CEFTAZIDIME
     Dosage: 2000 MG, TID
     Route: 042
     Dates: start: 20170911, end: 20170911
  77. CEFTAZIDIME. [Concomitant]
     Active Substance: CEFTAZIDIME
     Dosage: 2000 MG, QID
     Route: 042
     Dates: start: 20170912, end: 20170917
  78. FENTANYL. [Concomitant]
     Active Substance: FENTANYL
     Indication: PAIN
     Dosage: 25 UG, BID
     Route: 042
     Dates: start: 20170911, end: 20170911
  79. HEPARIN [Concomitant]
     Active Substance: HEPARIN SODIUM
     Indication: PRODUCT USED FOR UNKNOWN INDICATION
     Dosage: 100 U, QD
     Route: 042
     Dates: start: 20170914, end: 20170917
  80. SODIUM CHLORIDE. [Concomitant]
     Active Substance: SODIUM CHLORIDE
     Indication: CYSTIC FIBROSIS LUNG
     Dosage: 100 ML, QD
     Route: 042
     Dates: start: 20170911, end: 20170918
  81. SODIUM CHLORIDE. [Concomitant]
     Active Substance: SODIUM CHLORIDE
     Dosage: 100 ML, QD
     Route: 042
     Dates: start: 20180109, end: 20180118
  82. ALBUTEROL HFA [Concomitant]
     Active Substance: ALBUTEROL SULFATE
     Dosage: UNK
     Route: 065
     Dates: start: 20180109, end: 20180109
  83. ALBUTEROL HFA [Concomitant]
     Active Substance: ALBUTEROL SULFATE
     Dosage: UNK
     Route: 065
     Dates: start: 20180115
  84. CETIRIZINE [Concomitant]
     Active Substance: CETIRIZINE HYDROCHLORIDE
     Indication: RHINITIS ALLERGIC
     Dosage: 10 MG, QD
     Route: 048
     Dates: start: 20170419
  85. PULMOZYME [Concomitant]
     Active Substance: DORNASE ALFA
     Dosage: 2.5 MG, QD
     Route: 055
     Dates: start: 20180109, end: 20180109
  86. PULMOZYME [Concomitant]
     Active Substance: DORNASE ALFA
     Dosage: 2.5 MG, BID
     Route: 055
     Dates: start: 20180110, end: 20180122
  87. NASONEX [Concomitant]
     Active Substance: MOMETASONE FUROATE
     Indication: RHINITIS ALLERGIC
     Dosage: 50 UG, QD
     Route: 045
     Dates: start: 20160511, end: 20170911
  88. PANCRELIPASE. [Concomitant]
     Active Substance: PANCRELIPASE
     Dosage: 9 DF, BID
     Route: 048
     Dates: start: 20170911, end: 20170911
  89. PANCRELIPASE. [Concomitant]
     Active Substance: PANCRELIPASE
     Dosage: 9 DF, TID
     Route: 048
     Dates: start: 20170914, end: 20170917
  90. PANCRELIPASE. [Concomitant]
     Active Substance: PANCRELIPASE
     Dosage: 7 DF, TID
     Route: 048
     Dates: start: 20180110, end: 20180117
  91. QVAR [Concomitant]
     Active Substance: BECLOMETHASONE DIPROPIONATE
     Indication: ASTHMA
     Dosage: 2 DF (2 PUFFS), BID
     Route: 055
     Dates: start: 20160511
  92. AQUADEKS [Concomitant]
     Active Substance: MINERALS\VITAMINS
     Dosage: 1 DF, BID
     Route: 048
     Dates: start: 20170912, end: 20170917
  93. SODIUM CHLORIDE. [Concomitant]
     Active Substance: SODIUM CHLORIDE
     Indication: CYSTIC FIBROSIS LUNG
     Dosage: 4 ML, BID
     Route: 055
     Dates: start: 20170911, end: 20170918
  94. SODIUM CHLORIDE. [Concomitant]
     Active Substance: SODIUM CHLORIDE
     Dosage: 4 ML, TID
     Route: 055
     Dates: start: 20180109, end: 20180118
  95. SODIUM CHLORIDE. [Concomitant]
     Active Substance: SODIUM CHLORIDE
     Dosage: 4 ML, TID
     Route: 055
     Dates: start: 20180113, end: 20180114
  96. BECLOMETHASONE [Concomitant]
     Active Substance: BECLOMETHASONE
     Indication: ASTHMA
     Dosage: 2 DF (PUFFS), QD
     Route: 055
     Dates: start: 20170911, end: 20170911
  97. HEPARIN [Concomitant]
     Active Substance: HEPARIN SODIUM
     Dosage: 100 U, QD
     Route: 042
     Dates: start: 20170914, end: 20170917
  98. LINEZOLID. [Concomitant]
     Active Substance: LINEZOLID
     Dosage: 600 MG, BID
     Route: 042
     Dates: start: 20180109, end: 20180117

REACTIONS (25)
  - Cough [Unknown]
  - Spinal cord compression [Unknown]
  - Haemoglobin increased [Unknown]
  - Mean platelet volume decreased [Unknown]
  - Blood potassium increased [Unknown]
  - Anion gap decreased [Unknown]
  - Platelet count increased [Unknown]
  - Haematocrit increased [Unknown]
  - Pulmonary function test decreased [Recovered/Resolved]
  - Concomitant disease aggravated [Recovered/Resolved]
  - Infective pulmonary exacerbation of cystic fibrosis [Recovered/Resolved]
  - Blood urea increased [Unknown]
  - Infective pulmonary exacerbation of cystic fibrosis [Recovered/Resolved]
  - Weight decreased [Recovered/Resolved]
  - Vitamin D decreased [Unknown]
  - White blood cell count increased [Unknown]
  - Neutrophil count increased [Unknown]
  - Enzyme abnormality [Recovered/Resolved]
  - Bronchial wall thickening [Unknown]
  - Blood glucose increased [Unknown]
  - Red blood cell count increased [Unknown]
  - Forced expiratory volume increased [Recovering/Resolving]
  - Weight increased [Recovered/Resolved]
  - Bronchiectasis [Unknown]
  - Sputum retention [Unknown]

NARRATIVE: CASE EVENT DATE: 201611
